FAERS Safety Report 5182776-1 (Version None)
Quarter: 2006Q4

REPORT INFORMATION
  Report Type: 
  Country: None (occurrence: None)
  Receive Date: 20061220
  Receipt Date: 20051114
  Transmission Date: 20070319
  Serious: No
  Sender: FDA-Public Use
  Company Number: US-GLAXOSMITHKLINE-A0582115A

PATIENT
  Age: 31 Year
  Sex: Female

DRUGS (1)
  1. TARGET NTS 7MG [Suspect]
     Indication: SMOKING CESSATION THERAPY
     Dates: start: 20051112, end: 20051113

REACTIONS (1)
  - APPLICATION SITE IRRITATION [None]
